FAERS Safety Report 5778124-6 (Version None)
Quarter: 2008Q2

REPORT INFORMATION
  Report Type: 
  Country: None (occurrence: None)
  Receive Date: 20080618
  Receipt Date: 20080618
  Transmission Date: 20081010
  Serious: No
  Sender: FDA-Public Use
  Company Number: None

PATIENT
  Age: 67 Year
  Sex: Female
  Weight: 136.0791 kg

DRUGS (17)
  1. CITALOPRAM HYDROBROMIDE [Suspect]
     Indication: DRUG USE FOR UNKNOWN INDICATION
     Dosage: CITALOPRAM 20 DAILY ORAL
     Route: 048
     Dates: start: 20080613
  2. KLOR-CON [Concomitant]
  3. ASPIRIN [Concomitant]
  4. DIOVAN [Concomitant]
  5. LANOXIN [Concomitant]
  6. LIPITOR [Concomitant]
  7. GEMFIBROZIL [Concomitant]
  8. VICODIN [Concomitant]
  9. WARFARIN SODIUM [Concomitant]
  10. LASIX [Concomitant]
  11. OMEPRAZOLE [Concomitant]
  12. LISINOPRIL AND HYDROCHLOROTHIAZIDE [Concomitant]
  13. DILTIAZEM HCL [Concomitant]
  14. FISH OIL [Concomitant]
  15. CLARITIN [Concomitant]
  16. CALCIUM [Concomitant]
  17. MQM [Concomitant]

REACTIONS (6)
  - DRUG INEFFECTIVE [None]
  - DRY MOUTH [None]
  - HOT FLUSH [None]
  - HYPOAESTHESIA ORAL [None]
  - NAUSEA [None]
  - SOMNOLENCE [None]
